FAERS Safety Report 4855751-1 (Version None)
Quarter: 2005Q4

REPORT INFORMATION
  Report Type: 
  Country: None (occurrence: None)
  Receive Date: 20051215
  Receipt Date: 20051215
  Transmission Date: 20060501
  Serious: Yes (Other)
  Sender: FDA-Public Use
  Company Number: None

PATIENT
  Age: 47 Year
  Sex: Male
  Weight: 140.6151 kg

DRUGS (1)
  1. LUNESTA [Suspect]
     Indication: SLEEP DISORDER
     Dates: start: 20050924, end: 20050925

REACTIONS (3)
  - DRY MOUTH [None]
  - NIGHTMARE [None]
  - PHARMACEUTICAL PRODUCT COMPLAINT [None]
